FAERS Safety Report 19883447 (Version 1)
Quarter: 2021Q3

REPORT INFORMATION
  Report Type: Report from Study
  Country: None (occurrence: BR)
  Receive Date: 20210926
  Receipt Date: 20210926
  Transmission Date: 20211014
  Serious: Yes (Disabling)
  Sender: FDA-Public Use
  Company Number: BR-ABBVIE-21K-020-4093219-00

PATIENT
  Sex: Female
  Weight: 72.5 kg

DRUGS (3)
  1. RINVOQ [Suspect]
     Active Substance: UPADACITINIB
     Indication: RHEUMATOID ARTHRITIS
     Dosage: 1 TABLET A DAY
     Route: 048
     Dates: start: 20210628, end: 2021
  2. METHOTREXATE. [Concomitant]
     Active Substance: METHOTREXATE
     Indication: PRODUCT USED FOR UNKNOWN INDICATION
  3. RINVOQ [Suspect]
     Active Substance: UPADACITINIB
     Dosage: 1 TABLET A DAY
     Route: 048
     Dates: start: 2021

REACTIONS (4)
  - Helicobacter infection [Unknown]
  - Weight decreased [Recovering/Resolving]
  - Hypophagia [Recovering/Resolving]
  - Pain [Recovering/Resolving]

NARRATIVE: CASE EVENT DATE: 2021
